FAERS Safety Report 6111530-9 (Version None)
Quarter: 2009Q1

REPORT INFORMATION
  Report Type: 
  Country: None (occurrence: None)
  Receive Date: 20090310
  Receipt Date: 20090310
  Transmission Date: 20090719
  Serious: Yes (Hospitalization)
  Sender: FDA-Public Use
  Company Number: None

PATIENT
  Age: 21 Year
  Sex: Male
  Weight: 63 kg

DRUGS (5)
  1. RISPERDAL [Suspect]
     Indication: SCHIZOPHRENIA
     Dosage: 2 TABLETS AT BEDTIME PO
     Route: 048
  2. BENZTROPINE MESYLATE [Concomitant]
  3. FLONASE [Concomitant]
  4. PROMETHAZINE [Concomitant]
  5. RANITIDINE [Concomitant]

REACTIONS (2)
  - PANCREATIC NECROSIS [None]
  - PANCREATITIS [None]
